FAERS Safety Report 10362545 (Version 1)
Quarter: 2014Q3

REPORT INFORMATION
  Report Type: Spontaneous
  Country: US (occurrence: None)
  Receive Date: 20140804
  Receipt Date: 20140804
  Transmission Date: 20150326
  Serious: Yes (Hospitalization)
  Sender: FDA-Public Use
  Company Number: None

PATIENT
  Age: 82 Year
  Sex: Female
  Weight: 67 kg

DRUGS (4)
  1. NAPROXEN 220 MG EQUALINE [Suspect]
     Active Substance: NAPROXEN
     Indication: ARTHRALGIA
     Dosage: PRIOR TO ADMISSION ONE TABLET QD ORAL
     Route: 048
  2. ASPIRIN 81 MG [Suspect]
     Active Substance: ASPIRIN
     Dosage: PRIOR TO ADMISSION ONE TABLE QD ORAL
     Route: 048
  3. TRIAMTERENE AND HYDROCHLOROTHIAZIDE [Concomitant]
     Active Substance: HYDROCHLOROTHIAZIDE\TRIAMTERENE
  4. MECLIZINE [Concomitant]
     Active Substance: MECLIZINE\MECLIZINE HYDROCHLORIDE

REACTIONS (3)
  - Gastric ulcer [None]
  - Dizziness [None]
  - Melaena [None]

NARRATIVE: CASE EVENT DATE: 20140201
